FAERS Safety Report 25068098 (Version 2)
Quarter: 2025Q2

REPORT INFORMATION
  Report Type: Spontaneous
  Country: JP (occurrence: JP)
  Receive Date: 20250312
  Receipt Date: 20250509
  Transmission Date: 20250716
  Serious: Yes (Hospitalization)
  Sender: BAUSCH AND LOMB
  Company Number: JP-MLMSERVICE-20250225-PI366661-00059-1

PATIENT
  Age: 48 Year
  Sex: Male
  Weight: 49.8 kg

DRUGS (1)
  1. AZATHIOPRINE [Suspect]
     Active Substance: AZATHIOPRINE
     Indication: Crohn^s disease
     Route: 048

REACTIONS (2)
  - Enterocutaneous fistula [Recovered/Resolved]
  - Squamous cell carcinoma of skin [Recovered/Resolved]
